FAERS Safety Report 4923901-4 (Version None)
Quarter: 2006Q1

REPORT INFORMATION
  Report Type: 
  Country: None (occurrence: None)
  Receive Date: 20060227
  Receipt Date: 20051025
  Transmission Date: 20060701
  Serious: Yes (Hospitalization)
  Sender: FDA-Public Use
  Company Number: US-MERCK-0510USA09042

PATIENT
  Age: 78 Year
  Sex: Male
  Weight: 102 kg

DRUGS (33)
  1. VIOXX [Suspect]
     Indication: ARTHRITIS
     Route: 048
     Dates: start: 20000101, end: 20030101
  2. VIOXX [Suspect]
     Indication: PAIN
     Route: 048
     Dates: start: 20000101, end: 20030101
  3. TOPROL-XL [Concomitant]
     Indication: BLOOD PRESSURE
     Route: 065
  4. PERSANTINE [Concomitant]
     Indication: ANXIETY
     Route: 065
  5. KLONOPIN [Concomitant]
     Indication: ANXIETY
     Route: 065
     Dates: start: 20050101, end: 20050101
  6. ATIVAN [Concomitant]
     Indication: ANXIETY
     Route: 065
     Dates: start: 20050401
  7. NORVASC [Concomitant]
     Indication: BLOOD PRESSURE
     Route: 065
  8. AGYRAX (MECLIZINE HYDROCHLORIDE) [Concomitant]
     Indication: HEADACHE
     Route: 065
  9. CAPOTEN [Concomitant]
     Indication: HYPERTENSION
     Route: 065
  10. PRILOSEC [Concomitant]
     Indication: GASTROOESOPHAGEAL REFLUX DISEASE
     Route: 065
  11. ASPIRIN [Concomitant]
     Indication: ANTICOAGULANT THERAPY
     Route: 065
  12. VICODIN [Concomitant]
     Indication: PAIN
     Route: 065
  13. VICODIN [Concomitant]
     Indication: ARTHRITIS
     Route: 065
  14. METAMUCIL [Concomitant]
     Indication: CONSTIPATION
     Route: 065
  15. DULCOLAX [Concomitant]
     Indication: CONSTIPATION
     Route: 065
  16. MIRALAX [Concomitant]
     Indication: CONSTIPATION
     Route: 065
  17. BEXTRA [Concomitant]
     Indication: INFLAMMATION
     Route: 065
  18. MONOPRIL [Concomitant]
     Indication: HYPERTENSION
     Route: 065
  19. LOPRESSOR [Concomitant]
     Indication: HYPERTENSION
     Route: 065
  20. PROCARDIA [Concomitant]
     Indication: BLOOD PRESSURE
     Route: 065
  21. DYAZIDE [Concomitant]
     Indication: HYPERTENSION
     Route: 065
  22. DYAZIDE [Concomitant]
     Indication: OEDEMA PERIPHERAL
     Route: 065
  23. COUMADIN [Concomitant]
     Indication: DEEP VEIN THROMBOSIS
     Route: 065
     Dates: start: 20040101
  24. PRAVACHOL [Concomitant]
     Route: 065
  25. IMITREX [Concomitant]
     Indication: MIGRAINE
     Route: 065
     Dates: start: 20050101, end: 20050101
  26. XANAX [Concomitant]
     Indication: PAIN
     Route: 065
     Dates: start: 20020101
  27. XANAX [Concomitant]
     Indication: DEPRESSION
     Route: 065
     Dates: start: 20020101
  28. PROZAC [Concomitant]
     Route: 065
  29. ZOLOFT [Concomitant]
     Route: 065
  30. TRANXENE [Concomitant]
     Route: 065
  31. ALPRAZOLAM [Concomitant]
     Route: 065
  32. PLAVIX [Concomitant]
     Route: 065
  33. PROPRANOLOL HYDROCHLORIDE [Concomitant]
     Route: 065

REACTIONS (21)
  - ANGINA PECTORIS [None]
  - ANXIETY [None]
  - CEREBROVASCULAR ACCIDENT [None]
  - CHEST DISCOMFORT [None]
  - CHEST PAIN [None]
  - DEPRESSION [None]
  - DIZZINESS [None]
  - DYSPEPSIA [None]
  - DYSPNOEA [None]
  - GASTROOESOPHAGEAL REFLUX DISEASE [None]
  - GOUT [None]
  - INSOMNIA [None]
  - MENINGITIS VIRAL [None]
  - MIGRAINE [None]
  - PAIN [None]
  - POST-TRAUMATIC STRESS DISORDER [None]
  - RENAL CELL CARCINOMA STAGE UNSPECIFIED [None]
  - RENAL DISORDER [None]
  - SLEEP APNOEA SYNDROME [None]
  - SWELLING [None]
  - THROMBOSIS [None]
